FAERS Safety Report 7141210-2 (Version None)
Quarter: 2010Q4

REPORT INFORMATION
  Report Type: 
  Country: None (occurrence: None)
  Receive Date: 20101207
  Receipt Date: 20101129
  Transmission Date: 20110411
  Serious: Yes (Other)
  Sender: FDA-Public Use
  Company Number: US-JNJFOC-20101200801

PATIENT
  Sex: Female
  Weight: 54.43 kg

DRUGS (9)
  1. DURAGESIC-100 [Suspect]
     Indication: BACK PAIN
     Route: 062
  2. DURAGESIC-100 [Suspect]
     Route: 062
  3. FENTANYL-100 [Suspect]
     Indication: BACK PAIN
     Route: 062
  4. FENTANYL-100 [Suspect]
     Indication: BACK PAIN
     Dosage: NDC: 0781-7244-55
     Route: 062
  5. FENTANYL [Suspect]
     Indication: BACK PAIN
     Route: 062
  6. CELEBREX [Concomitant]
     Indication: INFLAMMATION
     Dosage: DAILY
     Route: 048
  7. ESTRATEST [Concomitant]
     Indication: HORMONE REPLACEMENT THERAPY
     Dosage: 1/2 STRENGTH DAILY
     Route: 048
  8. ZOCOR [Concomitant]
     Indication: BLOOD CHOLESTEROL
     Route: 048
  9. SOMA [Concomitant]
     Indication: MUSCLE RELAXANT THERAPY
     Dosage: 4 TIMES DAILY
     Route: 048

REACTIONS (10)
  - DEPENDENCE [None]
  - EATING DISORDER [None]
  - INTERVERTEBRAL DISC PROTRUSION [None]
  - PRODUCT ADHESION ISSUE [None]
  - ROAD TRAFFIC ACCIDENT [None]
  - TEMPOROMANDIBULAR JOINT SYNDROME [None]
  - VOMITING [None]
  - WEIGHT DECREASED [None]
  - WHIPLASH INJURY [None]
  - WRONG TECHNIQUE IN DRUG USAGE PROCESS [None]
